FAERS Safety Report 6526382-2 (Version None)
Quarter: 2010Q1

REPORT INFORMATION
  Report Type: 
  Country: None (occurrence: None)
  Receive Date: 20100105
  Receipt Date: 20091230
  Transmission Date: 20100710
  Serious: Yes (Other)
  Sender: FDA-Public Use
  Company Number: US-RB-000069-10

PATIENT
  Age: 68 Year
  Sex: Male

DRUGS (1)
  1. DELSYM ADULT COUGH SYRUP [Suspect]
     Dosage: TOOK 10ML LAST NIGHT AND THIS MORNING
     Route: 048
     Dates: start: 20091229

REACTIONS (1)
  - BLOOD PRESSURE INCREASED [None]
